FAERS Safety Report 7943163-3 (Version None)
Quarter: 2011Q4

REPORT INFORMATION
  Report Type: 
  Country: None (occurrence: None)
  Receive Date: 20111128
  Receipt Date: 20111116
  Transmission Date: 20120403
  Serious: Yes (Other)
  Sender: FDA-Public Use
  Company Number: PHHY2011DE100855

PATIENT
  Sex: Male

DRUGS (1)
  1. DIOVAN HCT [Suspect]
     Dosage: 1 DF, (VALSARTAN 80 MG, HYDROCHLOROTHIAZIDE 12.5 MG), QD
     Dates: start: 20110601

REACTIONS (4)
  - INCORRECT DOSE ADMINISTERED [None]
  - EYE HAEMORRHAGE [None]
  - BLOOD PRESSURE DIASTOLIC DECREASED [None]
  - BLOOD PRESSURE INCREASED [None]
